FAERS Safety Report 9711075 (Version 2)
Quarter: 2013Q4

REPORT INFORMATION
  Report Type: Spontaneous
  Country: US (occurrence: US)
  Receive Date: 20131126
  Receipt Date: 20131126
  Transmission Date: 20140711
  Serious: No
  Sender: FDA-Public Use
  Company Number: US-BRISTOL-MYERS SQUIBB COMPANY-19047620

PATIENT
  Age: 74 Year
  Sex: Female
  Weight: 113.38 kg

DRUGS (4)
  1. BYDUREON [Suspect]
     Indication: TYPE 2 DIABETES MELLITUS
     Dosage: PRESCRIPTION #:  122761811020.?73263, EXP:JUN15,NDC#:66780-226-01
     Dates: start: 201303
  2. METFORMIN [Concomitant]
     Dosage: TABS
     Route: 048
  3. GLIMEPIRIDE [Concomitant]
     Route: 048
  4. PRAVASTATIN SODIUM [Concomitant]

REACTIONS (2)
  - Injection site reaction [Unknown]
  - Arthralgia [Recovered/Resolved]
